FAERS Safety Report 8862677 (Version 1)
Quarter: 2012Q4

REPORT INFORMATION
  Report Type: Report from Study
  Country: US (occurrence: US)
  Receive Date: 20121026
  Receipt Date: 20121026
  Transmission Date: 20130627
  Serious: Yes (Death, Other)
  Sender: FDA-Public Use
  Company Number: US-GENZYME-LEUK-1000311

PATIENT
  Age: 4 Year
  Sex: Female

DRUGS (1)
  1. LEUKINE [Suspect]
     Indication: PRODUCT USED FOR UNKNOWN INDICATION
     Dosage: 250 mcg/m2, qd
     Route: 065
     Dates: start: 20120622, end: 20120626

REACTIONS (16)
  - Cardiac arrest [Fatal]
  - Metabolic acidosis [Fatal]
  - Pulse absent [Unknown]
  - Loss of consciousness [Unknown]
  - Cardiomegaly [Unknown]
  - Gastrointestinal oedema [Unknown]
  - Coagulopathy [Unknown]
  - Pancytopenia [Unknown]
  - Pericardial effusion [Unknown]
  - Hypertension [Unknown]
  - Anaphylactic reaction [Unknown]
  - Abdominal distension [Unknown]
  - Pyrexia [Unknown]
  - Abdominal pain [Unknown]
  - Rhinorrhoea [Unknown]
  - Cough [Unknown]
